FAERS Safety Report 19927591 (Version 1)
Quarter: 2021Q4

REPORT INFORMATION
  Report Type: Report from Study
  Country: AU (occurrence: AU)
  Receive Date: 20211007
  Receipt Date: 20211007
  Transmission Date: 20220303
  Serious: Yes (Other)
  Sender: FDA-Public Use
  Company Number: AU-NOVARTISPH-NVSC2021AU227077

PATIENT
  Age: 40 Year
  Sex: Male

DRUGS (5)
  1. AMLODIPINE [Suspect]
     Active Substance: AMLODIPINE BESYLATE
     Indication: Myocardial infarction
     Dosage: UNK
     Route: 065
  2. FUROSEMIDE [Suspect]
     Active Substance: FUROSEMIDE
     Indication: Myocardial infarction
     Dosage: UNK
     Route: 065
  3. PERINDOPRIL [Suspect]
     Active Substance: PERINDOPRIL
     Indication: Myocardial infarction
     Dosage: UNK
     Route: 065
  4. SPIRONOLACTONE [Suspect]
     Active Substance: SPIRONOLACTONE
     Indication: Myocardial infarction
     Dosage: UNK
     Route: 065
  5. CARVEDILOL [Suspect]
     Active Substance: CARVEDILOL
     Indication: Myocardial infarction
     Dosage: UNK
     Route: 065

REACTIONS (16)
  - Pulmonary oedema [Unknown]
  - Tachycardia [Unknown]
  - Oedema peripheral [Unknown]
  - Dysstasia [Unknown]
  - Chest discomfort [Unknown]
  - Fear [Unknown]
  - Pigmentation disorder [Recovered/Resolved]
  - Blister [Unknown]
  - Blood pressure decreased [Unknown]
  - Dyspnoea [Unknown]
  - Gait disturbance [Unknown]
  - Oedema [Unknown]
  - Depression [Recovered/Resolved]
  - Anxiety [Recovered/Resolved]
  - Weight decreased [Unknown]
  - Dizziness [Unknown]
